FAERS Safety Report 6845003-2 (Version None)
Quarter: 2010Q3

REPORT INFORMATION
  Report Type: 
  Country: None (occurrence: None)
  Receive Date: 20100715
  Receipt Date: 20100706
  Transmission Date: 20110219
  Serious: Yes (Hospitalization, Disabling, Other)
  Sender: FDA-Public Use
  Company Number: US-CELGENEUS-163-21880-09050540

PATIENT
  Sex: Male

DRUGS (31)
  1. REVLIMID [Suspect]
     Indication: MULTIPLE MYELOMA
     Route: 048
     Dates: start: 20090401, end: 20090501
  2. REVLIMID [Suspect]
     Route: 048
     Dates: start: 20100430, end: 20100501
  3. REVLIMID [Suspect]
     Route: 048
     Dates: start: 20090520, end: 20100614
  4. VELCADE [Suspect]
     Route: 065
  5. VELCADE [Suspect]
     Dates: start: 20100413
  6. TEMAZEPAM [Concomitant]
     Route: 065
     Dates: start: 20100607
  7. OXYCODONE HCL [Concomitant]
     Indication: PAIN
     Dosage: 5/325MG
     Route: 065
     Dates: start: 20100607
  8. SENNA [Concomitant]
     Indication: CONSTIPATION
     Route: 065
     Dates: start: 20100607
  9. DECADRON [Concomitant]
     Indication: MULTIPLE MYELOMA
     Route: 065
     Dates: start: 20100607
  10. FLOMAX [Concomitant]
     Route: 065
     Dates: start: 20100607
  11. ZOFRAN [Concomitant]
     Indication: NAUSEA
     Route: 065
     Dates: start: 20100607
  12. BISUP/HCTZ [Concomitant]
     Indication: HYPERTENSION
     Route: 065
     Dates: start: 20100607
  13. ACYCLOVIR [Concomitant]
     Indication: ANTIVIRAL PROPHYLAXIS
     Route: 065
     Dates: start: 20100607
  14. PRILOSEC [Concomitant]
     Route: 065
     Dates: start: 20100607
  15. POTASSIUM CHLORIDE [Concomitant]
     Route: 051
     Dates: start: 20100607
  16. MAGNESIUM [Concomitant]
     Route: 065
     Dates: start: 20100607
  17. MAGNESIUM [Concomitant]
     Route: 051
  18. CELLCEPT [Concomitant]
     Route: 065
     Dates: start: 20100607
  19. VFEND [Concomitant]
     Indication: FUNGAL INFECTION
     Route: 065
     Dates: start: 20100607
  20. URSODIOL [Concomitant]
     Route: 065
     Dates: start: 20100607
  21. ASPIRIN [Concomitant]
     Indication: THROMBOSIS PROPHYLAXIS
     Route: 065
     Dates: start: 20100607
  22. BACTRIM [Concomitant]
     Indication: INFECTION PROPHYLAXIS
     Route: 065
     Dates: start: 20100607
  23. ZIAC [Concomitant]
     Indication: BLOOD PRESSURE
     Route: 065
  24. FLUDARABINE PHOSPHATE [Concomitant]
     Indication: PRODUCT USED FOR UNKNOWN INDICATION
     Route: 065
     Dates: start: 20100101
  25. TACROLIMUS [Concomitant]
     Indication: PRODUCT USED FOR UNKNOWN INDICATION
     Route: 048
  26. PREDNISONE [Concomitant]
     Indication: PRODUCT USED FOR UNKNOWN INDICATION
     Dosage: 40MG QAM WITH A TAPER 10MG
     Route: 048
  27. PREDNISONE [Concomitant]
     Route: 048
     Dates: start: 20100429
  28. LIDEX [Concomitant]
     Indication: PRODUCT USED FOR UNKNOWN INDICATION
     Route: 065
  29. COMPAZINE [Concomitant]
     Indication: PRODUCT USED FOR UNKNOWN INDICATION
     Route: 065
  30. COUMADIN [Concomitant]
     Indication: ANTICOAGULANT THERAPY
     Route: 065
  31. VORICONAZOLE [Concomitant]
     Indication: PRODUCT USED FOR UNKNOWN INDICATION
     Route: 048

REACTIONS (11)
  - DIZZINESS [None]
  - DYSPNOEA [None]
  - FALL [None]
  - FATIGUE [None]
  - ILEUS [None]
  - MYALGIA [None]
  - NEUROPATHY PERIPHERAL [None]
  - OEDEMA PERIPHERAL [None]
  - ORTHOSTATIC HYPOTENSION [None]
  - PAIN [None]
  - PYREXIA [None]
